FAERS Safety Report 9380639 (Version 1)
Quarter: 2013Q2

REPORT INFORMATION
  Report Type: Spontaneous
  Country: US (occurrence: None)
  Receive Date: 20130628
  Receipt Date: 20130628
  Transmission Date: 20140414
  Serious: Yes (Hospitalization)
  Sender: FDA-Public Use
  Company Number: 2013AP006248

PATIENT
  Age: 19 Year
  Sex: Female

DRUGS (1)
  1. LEVOFLOXACIN [Suspect]
     Indication: LOBAR PNEUMONIA
     Route: 048

REACTIONS (3)
  - Stevens-Johnson syndrome [None]
  - Eye inflammation [None]
  - Corneal transplant [None]
